FAERS Safety Report 7272730-8 (Version None)
Quarter: 2010Q4

REPORT INFORMATION
  Report Type: 
  Country: None (occurrence: None)
  Receive Date: 20101208
  Receipt Date: 20100419
  Transmission Date: 20110411
  Serious: Yes (Death, Hospitalization)
  Sender: FDA-Public Use
  Company Number: 1000012530

PATIENT
  Age: 92 Year
  Sex: Female
  Weight: 46.2669 kg

DRUGS (4)
  1. NAMENDA [Suspect]
     Indication: DEMENTIA ALZHEIMER'S TYPE
     Dosage: 5 MG ( 5 MG, 1 IN 1 D), ORAL, 10 MG (5 MG, 2 IN 1 D), ORAL, 15 MG , ORAL, 20 MG (10 MG, 2 IN 1 D), O
     Route: 048
     Dates: start: 20060524, end: 20060530
  2. NAMENDA [Suspect]
     Indication: DEMENTIA ALZHEIMER'S TYPE
     Dosage: 5 MG ( 5 MG, 1 IN 1 D), ORAL, 10 MG (5 MG, 2 IN 1 D), ORAL, 15 MG , ORAL, 20 MG (10 MG, 2 IN 1 D), O
     Route: 048
     Dates: start: 20060531, end: 20060606
  3. NAMENDA [Suspect]
     Indication: DEMENTIA ALZHEIMER'S TYPE
     Dosage: 5 MG ( 5 MG, 1 IN 1 D), ORAL, 10 MG (5 MG, 2 IN 1 D), ORAL, 15 MG , ORAL, 20 MG (10 MG, 2 IN 1 D), O
     Route: 048
     Dates: start: 20060607, end: 20060613
  4. NAMENDA [Suspect]
     Indication: DEMENTIA ALZHEIMER'S TYPE
     Dosage: 5 MG ( 5 MG, 1 IN 1 D), ORAL, 10 MG (5 MG, 2 IN 1 D), ORAL, 15 MG , ORAL, 20 MG (10 MG, 2 IN 1 D), O
     Route: 048
     Dates: start: 20060614, end: 20100316

REACTIONS (1)
  - MYOCARDIAL INFARCTION [None]
